FAERS Safety Report 17528965 (Version 1)
Quarter: 2020Q1

REPORT INFORMATION
  Report Type: Spontaneous
  Country: FR (occurrence: FR)
  Receive Date: 20200311
  Receipt Date: 20200311
  Transmission Date: 20200409
  Serious: Yes (Disabling)
  Sender: FDA-Public Use
  Company Number: FR-009507513-2003FRA002333

PATIENT
  Age: 33 Year
  Sex: Male
  Weight: 63 kg

DRUGS (1)
  1. PROPECIA [Suspect]
     Active Substance: FINASTERIDE
     Indication: DIFFUSE ALOPECIA
     Dosage: 1 MILLIGRAM, QD
     Route: 048
     Dates: start: 20060801, end: 20200131

REACTIONS (2)
  - Bladder dysplasia [Not Recovered/Not Resolved]
  - Bladder neck obstruction [Not Recovered/Not Resolved]

NARRATIVE: CASE EVENT DATE: 20150101
